FAERS Safety Report 20960319 (Version 7)
Quarter: 2022Q4

REPORT INFORMATION
  Report Type: Report from Study
  Country: CA (occurrence: CA)
  Receive Date: 20220615
  Receipt Date: 20221025
  Transmission Date: 20230113
  Serious: Yes (Other)
  Sender: FDA-Public Use
  Company Number: CA-BRISTOL-MYERS SQUIBB COMPANY-2022-048722

PATIENT
  Age: 75 Year
  Sex: Male
  Weight: 58.97 kg

DRUGS (6)
  1. OPDIVO [Suspect]
     Active Substance: NIVOLUMAB
     Indication: Oesophageal carcinoma
     Route: 042
     Dates: start: 20220518
  2. OPDIVO [Suspect]
     Active Substance: NIVOLUMAB
     Route: 042
     Dates: start: 20220518
  3. PANTOPRAZOLE SODIUM [Concomitant]
     Active Substance: PANTOPRAZOLE SODIUM
     Indication: Product used for unknown indication
     Route: 065
  4. ROSUVASTATIN CALCIUM [Concomitant]
     Active Substance: ROSUVASTATIN CALCIUM
     Indication: Product used for unknown indication
     Dosage: UNK
     Route: 065
  5. PMS METOPROLOL [Concomitant]
     Indication: Product used for unknown indication
     Route: 065
  6. FLUOROURACIL\LEUCOVORIN CALCIUM\OXALIPLATIN [Concomitant]
     Active Substance: FLUOROURACIL\LEUCOVORIN CALCIUM\OXALIPLATIN
     Indication: Oesophageal carcinoma

REACTIONS (40)
  - Cytopenia [Unknown]
  - Glaucoma [Unknown]
  - Contusion [Recovering/Resolving]
  - Infusion related reaction [Recovered/Resolved]
  - Vitreous floaters [Unknown]
  - Mouth ulceration [Recovered/Resolved]
  - Chapped lips [Unknown]
  - Paraesthesia [Not Recovered/Not Resolved]
  - Hypoaesthesia [Not Recovered/Not Resolved]
  - Aphthous ulcer [Unknown]
  - Neuralgia [Recovered/Resolved]
  - Balance disorder [Unknown]
  - Productive cough [Recovered/Resolved]
  - Constipation [Recovered/Resolved]
  - Decreased appetite [Unknown]
  - Abdominal pain [Recovered/Resolved]
  - Fatigue [Unknown]
  - Nausea [Unknown]
  - Tinnitus [Not Recovered/Not Resolved]
  - Dyspepsia [Not Recovered/Not Resolved]
  - Dyschezia [Unknown]
  - Sleep disorder [Unknown]
  - White blood cell count decreased [Unknown]
  - Gait disturbance [Unknown]
  - Feeling abnormal [Unknown]
  - Off label use [Unknown]
  - Abdominal tenderness [Recovering/Resolving]
  - Dyspnoea [Unknown]
  - Palpitations [Recovered/Resolved]
  - Dizziness postural [Unknown]
  - Malaise [Not Recovered/Not Resolved]
  - Increased appetite [Unknown]
  - Somnolence [Not Recovered/Not Resolved]
  - Muscular weakness [Unknown]
  - Cataract [Unknown]
  - Flatulence [Unknown]
  - Syncope [Unknown]
  - Vomiting [Unknown]
  - Cough [Unknown]
  - Oral discomfort [Unknown]

NARRATIVE: CASE EVENT DATE: 20220727
